FAERS Safety Report 11708814 (Version 1)
Quarter: 2015Q4

REPORT INFORMATION
  Report Type: Spontaneous
  Country: US (occurrence: US)
  Receive Date: 20151104
  Receipt Date: 20151104
  Transmission Date: 20160304
  Serious: No
  Sender: FDA-Public Use
  Company Number: US-ELI_LILLY_AND_COMPANY-US201012000567

PATIENT
  Age: 88 Year
  Sex: Male

DRUGS (1)
  1. FORTEO [Suspect]
     Active Substance: TERIPARATIDE
     Dosage: 20 UG, DAILY (1/D)
     Route: 058
     Dates: start: 20090527

REACTIONS (9)
  - Pain in extremity [Unknown]
  - Joint instability [Unknown]
  - Muscular weakness [Unknown]
  - Rash [Unknown]
  - Fall [Unknown]
  - Injection site haemorrhage [Unknown]
  - Arthralgia [Unknown]
  - Pruritus [Unknown]
  - Contusion [Unknown]

NARRATIVE: CASE EVENT DATE: 201011
